FAERS Safety Report 8355232-7 (Version None)
Quarter: 2012Q2

REPORT INFORMATION
  Report Type: 
  Country: None (occurrence: None)
  Receive Date: 20120511
  Receipt Date: 20110518
  Transmission Date: 20120825
  Serious: No
  Sender: FDA-Public Use
  Company Number: US-TEVA-2011002467

PATIENT
  Sex: Female
  Weight: 93.07 kg

DRUGS (12)
  1. NUVIGIL [Suspect]
     Indication: SLEEP APNOEA SYNDROME
     Dosage: 150 MILLIGRAM;
     Route: 048
     Dates: start: 20110405
  2. SINGULAIR [Concomitant]
     Dates: start: 20060101
  3. GLYBURIDE [Concomitant]
     Dates: start: 20060101
  4. LISINOPRIL [Concomitant]
     Dates: start: 20050101
  5. CELEBREX [Concomitant]
     Dates: start: 20101001
  6. KLONOPIN [Concomitant]
     Dates: start: 20050101
  7. OMEPRAZOLE [Concomitant]
     Dates: start: 20060101
  8. ADVAIR DISKUS 100/50 [Concomitant]
     Dates: start: 20060101
  9. THYROID TAB [Concomitant]
     Dates: start: 20090101
  10. TRAZODONE HCL [Concomitant]
     Dates: start: 20100701
  11. NUVIGIL [Suspect]
     Dosage: 75 MILLIGRAM;
     Route: 048
     Dates: end: 20110517
  12. PREMARIN [Concomitant]
     Dates: start: 20070101

REACTIONS (3)
  - SLEEP DISORDER [None]
  - MYALGIA [None]
  - DRUG EFFECT INCREASED [None]
